FAERS Safety Report 7029498-X (Version None)
Quarter: 2010Q3

REPORT INFORMATION
  Report Type: 
  Country: None (occurrence: None)
  Receive Date: 20100930
  Receipt Date: 20100921
  Transmission Date: 20110219
  Serious: Yes (Hospitalization, Other)
  Sender: FDA-Public Use
  Company Number: DSU-2010-04992

PATIENT
  Sex: Female

DRUGS (9)
  1. AZOR [Suspect]
     Indication: HYPERTENSION
     Dosage: 5/40MG (QD), PER ORAL
     Route: 048
  2. ENTOCORT EC [Suspect]
     Indication: CROHN'S DISEASE
     Dosage: UNKNOWN, PER ORAL
     Route: 048
  3. QUESTRAN (COLESTYRAMINE) (COLESTYRAMINE) [Concomitant]
  4. CRESTOR [Concomitant]
  5. PREMARIN (ESTROGENS CONJUGATED) (ESTROGENS CONJUGATED) [Concomitant]
  6. METOPROLOL SUCCINATE [Concomitant]
  7. PROTONIX [Concomitant]
  8. FOLIC ACID (FOLIC ACID) (FOLIC ACID) [Concomitant]
  9. ASPIRIN (ACETYLSALICYLIC ACID) (81) (ACETYLSALICYLIC ACID) [Concomitant]

REACTIONS (4)
  - DEHYDRATION [None]
  - REACTION TO DRUG EXCIPIENTS [None]
  - VOMITING [None]
  - WEIGHT DECREASED [None]
